FAERS Safety Report 10480216 (Version 3)
Quarter: 2014Q4

REPORT INFORMATION
  Report Type: Spontaneous
  Country: JP (occurrence: JP)
  Receive Date: 20140929
  Receipt Date: 20141117
  Transmission Date: 20150528
  Serious: Yes (Other)
  Sender: FDA-Public Use
  Company Number: JP-BRISTOL-MYERS SQUIBB COMPANY-21423272

PATIENT
  Age: 52 Year
  Sex: Female
  Weight: 70 kg

DRUGS (10)
  1. FORXIGA [Suspect]
     Active Substance: DAPAGLIFLOZIN
     Indication: TYPE 2 DIABETES MELLITUS
     Dosage: TABLET,DOSE UNKNOWN
     Route: 048
     Dates: start: 201409, end: 201409
  2. METGLUCO [Concomitant]
     Active Substance: METFORMIN HYDROCHLORIDE
     Dosage: NUMBER OF SEPARATE DOSAGES UNKNOWN
     Route: 048
  3. LAMICTAL [Concomitant]
     Active Substance: LAMOTRIGINE
     Indication: DEPRESSION
     Dosage: BEFORE SLEEP
     Route: 048
  4. HORIZON [Concomitant]
     Active Substance: DIAZEPAM
     Indication: ANXIETY DISORDER
  5. CERCINE [Concomitant]
     Active Substance: DIAZEPAM
     Dosage: MORNING, NOON, AND EVENING ADMINISTRATION
     Route: 048
  6. PAROXETINE [Concomitant]
     Active Substance: PAROXETINE\PAROXETINE HYDROCHLORIDE
     Indication: DEPRESSION
     Dosage: MORNING ADMINISTRATION
     Route: 048
  7. LONASEN [Concomitant]
     Active Substance: BLONANSERIN
     Indication: DEPRESSION
     Dosage: MORNING, NOON, AND EVENING ADMINISTRATION
     Route: 048
  8. DEPAS [Concomitant]
     Active Substance: ETIZOLAM
     Indication: ANXIETY DISORDER
     Dosage: MORNING, NOON, AND EVENING ADMINISTRATION
     Route: 048
  9. TRYPTANOL [Concomitant]
     Active Substance: AMITRIPTYLINE
     Indication: DEPRESSION
     Dosage: MORNING, NOON, AND EVENING ADMINISTRATION
     Route: 048
  10. CYMBALTA [Concomitant]
     Active Substance: DULOXETINE HYDROCHLORIDE
     Indication: DEPRESSION
     Dosage: MORNING ADMINISTRATION
     Route: 048

REACTIONS (1)
  - Depression [Recovering/Resolving]

NARRATIVE: CASE EVENT DATE: 201409
